FAERS Safety Report 5683565-1 (Version None)
Quarter: 2008Q2

REPORT INFORMATION
  Report Type: 
  Country: None (occurrence: None)
  Receive Date: 20080321
  Receipt Date: 20071030
  Transmission Date: 20081010
  Serious: Yes (Other)
  Sender: FDA-Public Use
  Company Number: 200717473US

PATIENT
  Age: 43 Year
  Sex: Female

DRUGS (2)
  1. CLOMID [Suspect]
     Dosage: CYC PO
     Route: 048
  2. CLOMID [Suspect]
     Dosage: CYC INJ

REACTIONS (2)
  - ABORTION SPONTANEOUS [None]
  - ECTOPIC PREGNANCY [None]
